FAERS Safety Report 13460613 (Version 2)
Quarter: 2017Q2

REPORT INFORMATION
  Report Type: Report from Study
  Country: GB (occurrence: GB)
  Receive Date: 20170420
  Receipt Date: 20170512
  Transmission Date: 20170830
  Serious: Yes (Hospitalization)
  Sender: FDA-Public Use
  Company Number: GB-ACCORD-050212

PATIENT
  Age: 56 Year
  Sex: Male

DRUGS (10)
  1. BEVACIZUMAB [Suspect]
     Active Substance: BEVACIZUMAB
     Indication: COLORECTAL CANCER METASTATIC
     Route: 042
     Dates: start: 20150909, end: 20151021
  2. FLUOROURACIL. [Suspect]
     Active Substance: FLUOROURACIL
     Indication: COLORECTAL CANCER METASTATIC
     Dosage: 11-NOV-2015: IV BOLUS: 800 MG, IV DRIP: 4800 MG (INFUSION) OVER 46 HOURS
     Route: 040
     Dates: start: 20150909, end: 20151021
  3. OXALIPLATIN. [Suspect]
     Active Substance: OXALIPLATIN
     Indication: COLORECTAL CANCER METASTATIC
     Route: 042
     Dates: start: 20150909, end: 20151021
  4. ONDANSETRON [Concomitant]
     Active Substance: ONDANSETRON
     Dosage: DAILY DOSE: 8 MILLIGRAM
     Dates: start: 20151110
  5. FLUCLOXACILLIN [Concomitant]
     Active Substance: FLUCLOXACILLIN
     Dates: start: 20160712, end: 20160716
  6. CO-AMOXICLAV [Concomitant]
     Active Substance: AMOXICILLIN\CLAVULANIC ACID
     Dosage: 625 MG FROM 31-MAY-2016 TO 21-JUN-2016.
     Dates: start: 20160802, end: 20160802
  7. AMOXYCILLIN/POTASSIUM CLAVULANATE [Concomitant]
     Dosage: 625MG
     Dates: start: 20160531, end: 20160621
  8. FOLINIC ACID [Suspect]
     Active Substance: LEUCOVORIN
     Indication: COLORECTAL CANCER METASTATIC
     Dosage: 11-NOV-2015: 350 MG,?27-JAN-2016: 400 MG/M2
     Route: 042
     Dates: start: 20150909, end: 20151021
  9. DEXAMETHASONE. [Concomitant]
     Active Substance: DEXAMETHASONE
     Dosage: DAILY DOSE: 8 MILLIGRAM
     Dates: start: 20150819
  10. DALTEPARIN [Concomitant]
     Active Substance: DALTEPARIN
     Dosage: DAILY DOSE: 5000 IU (INTERNATIONAL UNIT)
     Dates: start: 20151130, end: 20151207

REACTIONS (7)
  - Fatigue [Unknown]
  - Peripheral sensory neuropathy [Unknown]
  - Urinary tract infection [Recovering/Resolving]
  - Lower respiratory tract infection [Recovered/Resolved]
  - Acute kidney injury [Recovered/Resolved]
  - Catheter site infection [Recovered/Resolved]
  - Constipation [Recovered/Resolved]

NARRATIVE: CASE EVENT DATE: 20150909
